FAERS Safety Report 14508563 (Version 2)
Quarter: 2019Q4

REPORT INFORMATION
  Report Type: Spontaneous
  Country: DE (occurrence: DE)
  Receive Date: 20180209
  Receipt Date: 20191227
  Transmission Date: 20200122
  Serious: Yes (Life-Threatening, Hospitalization, Other)
  Sender: FDA-Public Use
  Company Number: DE-009507513-1801DEU014138

PATIENT
  Age: 89 Year
  Sex: Female

DRUGS (8)
  1. CEFUROXIME. [Interacting]
     Active Substance: CEFUROXIME
     Indication: PRODUCT USED FOR UNKNOWN INDICATION
     Dosage: 4.5 GRAM, QD (3 TIMES 1,5 G)
     Route: 065
  2. HEPARIN [Concomitant]
     Active Substance: HEPARIN SODIUM
     Indication: PROPHYLAXIS
     Dosage: 60 IU/KG, BODY WEIGHT
     Route: 065
  3. SIMVASTATIN. [Suspect]
     Active Substance: SIMVASTATIN
     Indication: PRODUCT USED FOR UNKNOWN INDICATION
     Dosage: 40 MG MILLIGRAM(S) EVERY DAY
     Route: 048
  4. CARVEDILOL. [Interacting]
     Active Substance: CARVEDILOL
     Indication: HYPERTENSION
     Dosage: 25 MG MILLIGRAM(S) EVERY DAY
     Route: 065
  5. DALTEPARIN SODIUM [Interacting]
     Active Substance: DALTEPARIN SODIUM
     Indication: PRODUCT USED FOR UNKNOWN INDICATION
     Dosage: 10000 INTERNATIONAL UNITS EVERY DAY (2 TIMES 5000 I.E)
     Route: 065
  6. VERAPAMIL [Interacting]
     Active Substance: VERAPAMIL HYDROCHLORIDE
     Indication: ATRIAL FIBRILLATION
     Dosage: 240 MG MILLIGRAM(S) EVERY DAY (3 X80 MG PER DAY)
     Route: 065
  7. FERROUS GLYCINE SULFATE [Interacting]
     Active Substance: FERROUS GLYCINE SULFATE
     Indication: PRODUCT USED FOR UNKNOWN INDICATION
     Dosage: 60 MG MILLIGRAM(S) EVERY DAY
     Route: 065
  8. TORSEMIDE. [Interacting]
     Active Substance: TORSEMIDE
     Indication: PRODUCT USED FOR UNKNOWN INDICATION
     Dosage: 20 MG MILLIGRAM(S) EVERY DAY (2 TIMES 10 MG)
     Route: 065

REACTIONS (13)
  - Atrial fibrillation [Recovered/Resolved]
  - Peripheral coldness [Recovered/Resolved]
  - Respiratory failure [Recovered/Resolved]
  - Cardiogenic shock [Recovered/Resolved]
  - Erysipelas [Unknown]
  - Cardiac failure acute [Recovered/Resolved]
  - Stasis dermatitis [Unknown]
  - Coma scale abnormal [Recovered/Resolved]
  - Drug interaction [Recovered/Resolved]
  - Drug interaction [Recovered/Resolved]
  - Ejection fraction decreased [Recovered/Resolved]
  - Pallor [Recovered/Resolved]
  - Atrial flutter [Recovered/Resolved]

NARRATIVE: CASE EVENT DATE: 2015
